FAERS Safety Report 14286803 (Version 1)
Quarter: 2017Q4

REPORT INFORMATION
  Report Type: Spontaneous
  Country: US (occurrence: US)
  Receive Date: 20171214
  Receipt Date: 20171214
  Transmission Date: 20180321
  Serious: No
  Sender: FDA-Public Use
  Company Number: US-ASTELLAS-2017US029621

PATIENT
  Sex: Female

DRUGS (1)
  1. TARCEVA [Suspect]
     Active Substance: ERLOTINIB HYDROCHLORIDE
     Indication: LUNG NEOPLASM MALIGNANT
     Dosage: ALTERNATE BETWEEN 100/150 MG EVERY 2 DAYS
     Route: 048
     Dates: start: 20130914

REACTIONS (4)
  - Somnolence [Unknown]
  - Confusional state [Unknown]
  - Drug dose omission [Unknown]
  - Cough [Unknown]
